FAERS Safety Report 5155766-2 (Version None)
Quarter: 2006Q4

REPORT INFORMATION
  Report Type: 
  Country: None (occurrence: None)
  Receive Date: 20061114
  Receipt Date: 20061030
  Transmission Date: 20070319
  Serious: Yes (Death, Other)
  Sender: FDA-Public Use
  Company Number: 2006134840

PATIENT
  Age: 68 Year
  Sex: Male

DRUGS (2)
  1. CELEBREX [Suspect]
     Dosage: ORAL
     Route: 048
     Dates: start: 20020314, end: 20040926
  2. VIOXX [Suspect]
     Dosage: ORAL
     Route: 048
     Dates: start: 20011120, end: 20020121

REACTIONS (3)
  - CARDIAC ARREST [None]
  - CEREBROVASCULAR ACCIDENT [None]
  - TRANSIENT ISCHAEMIC ATTACK [None]
